FAERS Safety Report 24618391 (Version 1)
Quarter: 2024Q4

REPORT INFORMATION
  Report Type: Spontaneous
  Country: US (occurrence: None)
  Receive Date: 20241113
  Receipt Date: 20241113
  Transmission Date: 20250114
  Serious: Yes (Hospitalization)
  Sender: Public
  Company Number: None

PATIENT
  Age: 70 Year
  Sex: Male

DRUGS (3)
  1. IBUPROFEN [Suspect]
     Active Substance: IBUPROFEN
     Indication: Pain
     Route: 048
  2. MELOXICAM [Suspect]
     Active Substance: MELOXICAM
     Dosage: FREQUENCY : DAILY;?
     Route: 048
     Dates: start: 20240415
  3. ACETAMINOPHEN [Suspect]
     Active Substance: ACETAMINOPHEN

REACTIONS (4)
  - Duodenal ulcer haemorrhage [None]
  - Self-medication [None]
  - Incorrect dose administered [None]
  - Intentional product use issue [None]

NARRATIVE: CASE EVENT DATE: 20240920
